FAERS Safety Report 4579238-9 (Version None)
Quarter: 2005Q1

REPORT INFORMATION
  Report Type: 
  Country: None (occurrence: None)
  Receive Date: 20050209
  Receipt Date: 20050209
  Transmission Date: 20050727
  Serious: Yes (Hospitalization)
  Sender: FDA-Public Use
  Company Number: None

PATIENT
  Sex: Male
  Weight: 95.709 kg

DRUGS (2)
  1. GEMZAR [Suspect]
     Indication: PANCREATIC CARCINOMA
     Dosage: 2130 Q WK IV
     Route: 042
     Dates: start: 20050118, end: 20050202
  2. ZOMETA [Suspect]
     Dosage: 4 Q4 WK IV
     Route: 042
     Dates: start: 20050118, end: 20050118

REACTIONS (1)
  - URINARY RETENTION [None]
